FAERS Safety Report 7369765-3 (Version None)
Quarter: 2011Q1

REPORT INFORMATION
  Report Type: 
  Country: None (occurrence: None)
  Receive Date: 20110323
  Receipt Date: 20110225
  Transmission Date: 20110831
  Serious: No
  Sender: FDA-Public Use
  Company Number: US-B.I. PHARMACEUTICALS,INC./RIDGEFIELD-2011-BP-06959BP

PATIENT
  Sex: Female

DRUGS (3)
  1. NORVASC [Concomitant]
     Indication: HYPERTENSION
  2. ZANTAC [Suspect]
     Dosage: 150 MG
     Route: 048
     Dates: start: 20060101
  3. SIMVASTATIN [Concomitant]
     Indication: BLOOD CHOLESTEROL INCREASED

REACTIONS (1)
  - REGURGITATION [None]
